FAERS Safety Report 4574802-5 (Version None)
Quarter: 2005Q1

REPORT INFORMATION
  Report Type: 
  Country: None (occurrence: None)
  Receive Date: 20050208
  Receipt Date: 20040701
  Transmission Date: 20050727
  Serious: No
  Sender: FDA-Public Use
  Company Number: US-GLAXOSMITHKLINE-A0516780A

PATIENT
  Age: 56 Year
  Sex: Female

DRUGS (3)
  1. PAXIL CR [Suspect]
     Route: 048
     Dates: start: 20030101, end: 20030101
  2. PAXIL [Suspect]
     Route: 048
     Dates: start: 20030101, end: 20030101
  3. LIBRIUM [Concomitant]

REACTIONS (4)
  - DIARRHOEA [None]
  - DRUG INEFFECTIVE [None]
  - FEELING ABNORMAL [None]
  - NAUSEA [None]
